FAERS Safety Report 23562596 (Version 3)
Quarter: 2024Q2

REPORT INFORMATION
  Report Type: Spontaneous
  Country: US (occurrence: US)
  Receive Date: 20240226
  Receipt Date: 20240410
  Transmission Date: 20240716
  Serious: No
  Sender: FDA-Public Use
  Company Number: US-SANOFI-01944328

PATIENT
  Age: 32 Year
  Sex: Female
  Weight: 124.7 kg

DRUGS (7)
  1. DUPIXENT [Suspect]
     Active Substance: DUPILUMAB
     Indication: Nasal polyps
     Dosage: 300 MG, QOW
     Route: 058
     Dates: start: 20230321, end: 20240206
  2. VENTOLIN [Concomitant]
     Active Substance: ALBUTEROL SULFATE
     Indication: Asthma
     Dosage: 90 UG 2 PUFF Q4-6 HOURS AS NEEDED
     Route: 055
     Dates: start: 20210430
  3. IRON [Concomitant]
     Active Substance: IRON
     Indication: Supplementation therapy
     Dosage: 325 UG
     Route: 048
     Dates: start: 202401
  4. MOMETASONE [Concomitant]
     Active Substance: MOMETASONE
     Indication: Nasal congestion
     Dosage: UNK
  5. MONTELUKAST [Concomitant]
     Active Substance: MONTELUKAST SODIUM
     Indication: Nasal congestion
     Dosage: UNK
  6. ONE A DAY WOMEN^S [ASCORBIC ACID;BETACAROTENE;BIOTIN;CALCIUM CARBONATE [Concomitant]
  7. SERTACONAZOLE NITRATE [Concomitant]
     Active Substance: SERTACONAZOLE NITRATE

REACTIONS (5)
  - Viral infection [Unknown]
  - Nausea [Unknown]
  - Fatigue [Unknown]
  - Nasal congestion [Unknown]
  - Exposure during pregnancy [Unknown]

NARRATIVE: CASE EVENT DATE: 20240110
